FAERS Safety Report 19877128 (Version 1)
Quarter: 2021Q3

REPORT INFORMATION
  Report Type: Spontaneous
  Country: JP (occurrence: JP)
  Receive Date: 20210923
  Receipt Date: 20210923
  Transmission Date: 20211014
  Serious: Yes (Other)
  Sender: FDA-Public Use
  Company Number: JP-TAKEDA-2021TUS058948

PATIENT
  Age: 11 Year
  Sex: Female

DRUGS (3)
  1. GASMOTIN [Concomitant]
     Active Substance: MOSAPRIDE CITRATE
     Dosage: UNK
     Route: 048
  2. INTUNIV [Suspect]
     Active Substance: GUANFACINE HYDROCHLORIDE
     Indication: ATTENTION DEFICIT HYPERACTIVITY DISORDER
     Dosage: 1 MILLIGRAM, QD
     Route: 048
     Dates: start: 20210325, end: 20210823
  3. CONCERTA [Concomitant]
     Active Substance: METHYLPHENIDATE HYDROCHLORIDE
     Indication: ATTENTION DEFICIT HYPERACTIVITY DISORDER
     Dosage: 18 MILLIGRAM, QD
     Route: 048

REACTIONS (1)
  - Electrocardiogram QT prolonged [Recovered/Resolved]

NARRATIVE: CASE EVENT DATE: 20210823
